FAERS Safety Report 11192846 (Version 1)
Quarter: 2015Q2

REPORT INFORMATION
  Report Type: Report from Study
  Country: US (occurrence: US)
  Receive Date: 20150616
  Receipt Date: 20150616
  Transmission Date: 20150821
  Serious: Yes (Hospitalization, Other)
  Sender: FDA-Public Use
  Company Number: US-GILEAD-2015-0158594

PATIENT
  Age: 52 Year
  Sex: Male

DRUGS (19)
  1. METHYLPREDNISOLONE. [Concomitant]
     Active Substance: METHYLPREDNISOLONE
  2. AMOXICILLIN. [Concomitant]
     Active Substance: AMOXICILLIN
  3. BUPROPION [Concomitant]
     Active Substance: BUPROPION
  4. FOLBIC [Concomitant]
     Active Substance: CYANOCOBALAMIN\FOLIC ACID\PYRIDOXINE
  5. INVOKANA [Concomitant]
     Active Substance: CANAGLIFLOZIN
  6. FUROSEMIDE. [Concomitant]
     Active Substance: FUROSEMIDE
  7. POTASSIUM [Concomitant]
     Active Substance: POTASSIUM
  8. LOVASTATIN. [Concomitant]
     Active Substance: LOVASTATIN
  9. VITAMINS NOS [Concomitant]
     Active Substance: VITAMINS
  10. CHOLESTYRAMINE. [Concomitant]
     Active Substance: CHOLESTYRAMINE
  11. TAMSULOSIN [Concomitant]
     Active Substance: TAMSULOSIN
  12. GLIMEPIRIDE. [Concomitant]
     Active Substance: GLIMEPIRIDE
  13. LISINOPRIL. [Concomitant]
     Active Substance: LISINOPRIL
  14. CHLORTHALIDONE. [Concomitant]
     Active Substance: CHLORTHALIDONE
  15. ONGLYZA [Concomitant]
     Active Substance: SAXAGLIPTIN HYDROCHLORIDE
  16. HYDROCODONE [Concomitant]
     Active Substance: HYDROCODONE
  17. DULOXETINE [Concomitant]
     Active Substance: DULOXETINE
  18. AMBRISENTAN [Suspect]
     Active Substance: AMBRISENTAN
     Indication: PULMONARY ARTERIAL HYPERTENSION
     Dosage: 5 MG, QD
     Route: 065
     Dates: start: 20150320
  19. LEVOFLOXACIN. [Concomitant]
     Active Substance: LEVOFLOXACIN

REACTIONS (1)
  - Pneumonia [Recovered/Resolved]
